FAERS Safety Report 8781457 (Version 3)
Quarter: 2013Q2

REPORT INFORMATION
  Report Type: Report from Study
  Country: JP (occurrence: JP)
  Receive Date: 20120913
  Receipt Date: 20130424
  Transmission Date: 20140414
  Serious: Yes (Other)
  Sender: FDA-Public Use
  Company Number: JP-009507513-1209JPN001430

PATIENT
  Age: 63 Year
  Sex: Male
  Weight: 82 kg

DRUGS (17)
  1. PEGINTRON [Suspect]
     Indication: CHRONIC HEPATITIS C
     Dosage: 1.5 MICROGRAM PER KILOGRAM, QW
     Route: 058
     Dates: start: 20120711, end: 20120711
  2. REBETOL [Suspect]
     Indication: CHRONIC HEPATITIS C
     Dosage: 1000 MG, UNK
     Route: 048
     Dates: start: 20120711, end: 20120715
  3. TELAVIC [Suspect]
     Indication: CHRONIC HEPATITIS C
     Dosage: 2250 MG, QD
     Route: 048
     Dates: start: 20120711, end: 20120715
  4. URSO [Concomitant]
     Indication: CHRONIC HEPATITIS C
     Dosage: 600 MG, UNK
  5. JUVELA N [Concomitant]
     Indication: CHRONIC HEPATITIS C
     Dosage: 300 MG, QD
     Route: 048
  6. METHYCOBAL [Concomitant]
     Indication: PROPHYLAXIS
     Dosage: 1500 MCG, ONCE
     Route: 048
  7. MAINTATE [Concomitant]
     Indication: HYPERTENSION
     Dosage: 5 MG, QD
     Route: 048
  8. ADALAT CR [Concomitant]
     Indication: HYPERTENSION
     Dosage: 40 MG, ONCE
     Route: 048
  9. DIOVAN [Concomitant]
     Indication: HYPERTENSION
     Dosage: 160 MG, QD
     Route: 048
  10. BAYASPIRIN [Concomitant]
     Indication: CEREBELLAR INFARCTION
     Dosage: 100 MG, ONCE
     Route: 048
  11. HERBESSER [Concomitant]
     Indication: HYPERTENSION
     Dosage: 60 MG, QD
     Route: 048
  12. CARDENALIN [Concomitant]
     Indication: HYPERTENSION
     Dosage: 3 MG, QD
     Route: 048
  13. CARDENALIN [Concomitant]
     Dosage: 1 MG, QD
     Route: 048
  14. ZYLORIC [Concomitant]
     Indication: PROPHYLAXIS
     Dosage: 300 MG, QD
     Route: 048
     Dates: start: 20120627, end: 20120731
  15. ALFAROL [Concomitant]
     Dosage: 1 MICROGRAM, QD
     Dates: start: 20120711, end: 20120715
  16. TALION (BEPOTASTINE BESYLATE) [Concomitant]
     Indication: PROPHYLAXIS
     Dosage: 10 MG, QD
     Route: 048
     Dates: start: 20120711, end: 20120713
  17. TALION (BEPOTASTINE BESYLATE) [Concomitant]
     Indication: RASH ERYTHEMATOUS
     Dosage: 20 MG, QD
     Route: 048
     Dates: start: 20120714, end: 20120731

REACTIONS (1)
  - Renal impairment [Recovered/Resolved]
